FAERS Safety Report 6203619-0 (Version None)
Quarter: 2009Q2

REPORT INFORMATION
  Report Type: 
  Country: None (occurrence: None)
  Receive Date: 20090527
  Receipt Date: 20090525
  Transmission Date: 20091009
  Serious: Yes (Hospitalization)
  Sender: FDA-Public Use
  Company Number: DE-WYE-G03613709

PATIENT
  Sex: Female
  Weight: 13 kg

DRUGS (1)
  1. TREVILOR RETARD [Suspect]
     Dosage: OVERDOSE AMOUNT 150MG
     Route: 048
     Dates: start: 20090430, end: 20090430

REACTIONS (2)
  - ACCIDENTAL DRUG INTAKE BY CHILD [None]
  - ACCIDENTAL OVERDOSE [None]
